FAERS Safety Report 4499823-2 (Version None)
Quarter: 2004Q4

REPORT INFORMATION
  Report Type: 
  Country: None (occurrence: None)
  Receive Date: 20041109
  Receipt Date: 20041101
  Transmission Date: 20050328
  Serious: Yes (Hospitalization, Other)
  Sender: FDA-Public Use
  Company Number: 04-11-1521

PATIENT
  Age: 59 Year
  Sex: Female

DRUGS (1)
  1. CLOZAPINE [Suspect]
     Dosage: 400 MG ORAL
     Route: 048
     Dates: start: 20010529, end: 20041001

REACTIONS (1)
  - LUNG NEOPLASM MALIGNANT [None]
